FAERS Safety Report 5238283-0 (Version None)
Quarter: 2007Q1

REPORT INFORMATION
  Report Type: 
  Country: None (occurrence: None)
  Receive Date: 20070209
  Receipt Date: 20070209
  Transmission Date: 20070707
  Serious: Yes (Hospitalization)
  Sender: FDA-Public Use
  Company Number: None

PATIENT
  Age: 85 Year
  Sex: Female
  Weight: 76.2043 kg

DRUGS (1)
  1. VALTREX [Suspect]
     Indication: HERPES ZOSTER
     Dosage: PO
     Route: 048
     Dates: start: 20060904, end: 20060904

REACTIONS (3)
  - CHEST DISCOMFORT [None]
  - EPIGASTRIC DISCOMFORT [None]
  - PARAESTHESIA [None]
